FAERS Safety Report 9447233 (Version 3)
Quarter: 2013Q3

REPORT INFORMATION
  Report Type: Spontaneous
  Country: JP (occurrence: JP)
  Receive Date: 20130808
  Receipt Date: 20130912
  Transmission Date: 20140515
  Serious: Yes (Other)
  Sender: FDA-Public Use
  Company Number: JP-AMGEN-JPNSP2013054563

PATIENT
  Age: 70 Year
  Sex: Male

DRUGS (2)
  1. ARANESP [Suspect]
     Indication: NEPHROGENIC ANAEMIA
     Dosage: 80 MUG, 1X/WEEK
     Route: 065
  2. MIRCERA [Suspect]
     Indication: NEPHROGENIC ANAEMIA
     Dosage: 150 MUG, 1X/4WEEKS
     Route: 042

REACTIONS (1)
  - Aplasia pure red cell [Not Recovered/Not Resolved]
